FAERS Safety Report 5751874-3 (Version None)
Quarter: 2008Q2

REPORT INFORMATION
  Report Type: 
  Country: None (occurrence: None)
  Receive Date: 20080527
  Receipt Date: 20080513
  Transmission Date: 20081010
  Serious: Yes (Other)
  Sender: FDA-Public Use
  Company Number: 2008BI007766

PATIENT
  Sex: Female

DRUGS (1)
  1. AVONEX [Suspect]
     Indication: MULTIPLE SCLEROSIS
     Dosage: IM
     Route: 030
     Dates: start: 20030320, end: 20060320

REACTIONS (7)
  - DEATH OF RELATIVE [None]
  - DEPRESSION [None]
  - EMPHYSEMA [None]
  - HYSTERECTOMY [None]
  - MYOCARDIAL INFARCTION [None]
  - NASAL OPERATION [None]
  - STAPHYLOCOCCAL INFECTION [None]
